FAERS Safety Report 7841722-X (Version None)
Quarter: 2011Q4

REPORT INFORMATION
  Report Type: 
  Country: None (occurrence: None)
  Receive Date: 20111025
  Receipt Date: 20111014
  Transmission Date: 20120403
  Serious: Yes (Other)
  Sender: FDA-Public Use
  Company Number: FR-JNJFOC-20111006948

PATIENT
  Age: 45 Year
  Sex: Female

DRUGS (2)
  1. REMICADE [Suspect]
     Indication: ANKYLOSING SPONDYLITIS
     Dosage: 8TH INFUSION
     Route: 042
     Dates: start: 20111014
  2. REMICADE [Suspect]
     Route: 042

REACTIONS (3)
  - PARAESTHESIA [None]
  - ERYTHEMA [None]
  - INFUSION RELATED REACTION [None]
